FAERS Safety Report 8852392 (Version 1)
Quarter: 2012Q4

REPORT INFORMATION
  Report Type: Report from Study
  Country: US (occurrence: US)
  Receive Date: 20121022
  Receipt Date: 20121022
  Transmission Date: 20130627
  Serious: Yes (Hospitalization)
  Sender: FDA-Public Use
  Company Number: US-PFIZER INC-2012180341

PATIENT
  Age: 35 Year
  Sex: Female
  Weight: 79.5 kg

DRUGS (7)
  1. TEMSIROLIMUS [Suspect]
     Dosage: 25 mg, weekly
     Route: 042
     Dates: start: 20120523
  2. CAPECITABINE [Suspect]
     Dosage: 1500 mg Am 1000mg Pm, 7days on 7 days off
     Dates: start: 20120523
  3. ATIVAN [Concomitant]
     Dosage: UNK
     Route: 048
  4. DILAUDID [Concomitant]
     Dosage: UNK
     Route: 048
  5. WELLBUTRIN [Concomitant]
     Dosage: UNK
     Route: 048
  6. KLONOPIN [Concomitant]
     Dosage: UNK
     Route: 048
  7. VIIBRYD [Concomitant]
     Dosage: UNK
     Route: 048

REACTIONS (3)
  - Small intestinal obstruction [Recovering/Resolving]
  - Pain [Recovering/Resolving]
  - Deep vein thrombosis [Recovering/Resolving]
